FAERS Safety Report 6840300-9 (Version None)
Quarter: 2010Q3

REPORT INFORMATION
  Report Type: 
  Country: None (occurrence: None)
  Receive Date: 20100714
  Receipt Date: 20100709
  Transmission Date: 20110219
  Serious: Yes (Other)
  Sender: FDA-Public Use
  Company Number: US-MERCK-0805USA00434

PATIENT
  Age: 50 Year
  Sex: Male

DRUGS (7)
  1. FOSAMAX PLUS D [Suspect]
     Indication: OSTEOPOROSIS
     Route: 048
     Dates: start: 20051201, end: 20060201
  2. FOSAMAX PLUS D [Suspect]
     Indication: BONE DENSITY DECREASED
     Route: 048
     Dates: start: 20051201, end: 20060201
  3. VALIUM [Concomitant]
     Route: 065
     Dates: start: 19730101
  4. PROVENTIL GENTLEHALER [Concomitant]
     Route: 065
     Dates: start: 19730101
  5. HORMONES (UNSPECIFIED) [Concomitant]
     Route: 065
     Dates: start: 19950101
  6. [THERAPY UNSPECIFIED] [Concomitant]
     Indication: BLOOD CHOLESTEROL DECREASED
     Route: 065
     Dates: start: 20040101
  7. FOSAMAX [Suspect]
     Route: 048
     Dates: start: 20060201, end: 20070701

REACTIONS (36)
  - ANGIOPATHY [None]
  - ANXIETY [None]
  - ARTHRALGIA [None]
  - BACK PAIN [None]
  - BLINDNESS UNILATERAL [None]
  - BONE DISORDER [None]
  - CEREBROVASCULAR ACCIDENT [None]
  - CHRONIC OBSTRUCTIVE PULMONARY DISEASE [None]
  - CONTUSION [None]
  - CONVULSION [None]
  - CORONARY ARTERY DISEASE [None]
  - DEMYELINATION [None]
  - DENTAL CARIES [None]
  - DISCOMFORT [None]
  - DRUG HYPERSENSITIVITY [None]
  - EXOSTOSIS [None]
  - FALL [None]
  - GRAND MAL CONVULSION [None]
  - IMPAIRED HEALING [None]
  - JAW DISORDER [None]
  - LOSS OF CONSCIOUSNESS [None]
  - MASTICATION DISORDER [None]
  - NECK PAIN [None]
  - OBESITY [None]
  - OPTIC ISCHAEMIC NEUROPATHY [None]
  - OPTIC NEURITIS [None]
  - OSTEOARTHRITIS [None]
  - OSTEONECROSIS OF JAW [None]
  - PITUITARY TUMOUR [None]
  - ROAD TRAFFIC ACCIDENT [None]
  - SINUSITIS [None]
  - SLEEP APNOEA SYNDROME [None]
  - SPINAL OSTEOARTHRITIS [None]
  - THYROID NEOPLASM [None]
  - TOOTH DISORDER [None]
  - VOCAL CORD PARESIS [None]
